FAERS Safety Report 26045441 (Version 1)
Quarter: 2025Q4

REPORT INFORMATION
  Report Type: Spontaneous
  Country: CA (occurrence: CA)
  Receive Date: 20251114
  Receipt Date: 20251114
  Transmission Date: 20260118
  Serious: Yes (Other)
  Sender: GALDERMA
  Company Number: CA-GALDERMA-CA2025022931

PATIENT

DRUGS (1)
  1. DOXYCYCLINE [Suspect]
     Active Substance: DOXYCYCLINE
     Indication: Pneumonia
     Route: 065

REACTIONS (9)
  - Neuropathy peripheral [Unknown]
  - Visual impairment [Unknown]
  - Dizziness [Unknown]
  - Dysphagia [Unknown]
  - Hypoaesthesia [Unknown]
  - Insomnia [Unknown]
  - Nasopharyngitis [Unknown]
  - Paraesthesia [Unknown]
  - Intentional product use issue [Recovered/Resolved]
